FAERS Safety Report 15874745 (Version 1)
Quarter: 2019Q1

REPORT INFORMATION
  Report Type: Other
  Country: US (occurrence: US)
  Receive Date: 20190126
  Receipt Date: 20190126
  Transmission Date: 20190417
  Serious: No
  Sender: FDA-Public Use
  Company Number: US-ACORDA-ACO_153174_2018

PATIENT
  Sex: Female

DRUGS (3)
  1. AMPYRA [Suspect]
     Active Substance: DALFAMPRIDINE
     Indication: FATIGUE
  2. AMPYRA [Suspect]
     Active Substance: DALFAMPRIDINE
     Indication: PARAESTHESIA
     Dosage: 10 MG, BID
     Route: 048
     Dates: start: 20180815, end: 20180817
  3. AMPYRA [Suspect]
     Active Substance: DALFAMPRIDINE
     Indication: MULTIPLE SCLEROSIS

REACTIONS (3)
  - Constipation [Not Recovered/Not Resolved]
  - Product use in unapproved indication [Unknown]
  - Fatigue [Recovering/Resolving]
